FAERS Safety Report 7778576-6 (Version None)
Quarter: 2011Q3

REPORT INFORMATION
  Report Type: 
  Country: None (occurrence: None)
  Receive Date: 20110926
  Receipt Date: 20110916
  Transmission Date: 20111222
  Serious: Yes (Hospitalization)
  Sender: FDA-Public Use
  Company Number: US-BAYER-200932087NA

PATIENT
  Age: 22 Year
  Sex: Female
  Weight: 73 kg

DRUGS (16)
  1. ZOFRAN [Concomitant]
     Indication: VOMITING
  2. COLACE [Concomitant]
     Dosage: UNK UNK, BID
  3. NARCAN [Concomitant]
  4. WARFARIN SODIUM [Concomitant]
     Dosage: 10 MG, UNK
     Route: 048
  5. XANAX [Concomitant]
     Dosage: 0.25 MG, UNK
  6. MAGNESIUM CHLORIDE [Concomitant]
     Indication: PAIN
     Dosage: 30 ML, QD
  7. YAZ [Suspect]
     Dosage: UNK
     Route: 048
     Dates: start: 20051201
  8. YASMIN [Suspect]
     Indication: PREMENSTRUAL SYNDROME
     Dosage: UNK
     Route: 048
     Dates: start: 20051201, end: 20060101
  9. YASMIN [Suspect]
     Dosage: UNK
     Route: 048
     Dates: start: 20050101, end: 20060101
  10. ACETAMINOPHEN [Concomitant]
     Dosage: 650 MG, UNK
  11. ZOFRAN [Concomitant]
     Indication: NAUSEA
     Dosage: 4 MG, UNK
     Route: 048
  12. NSAID'S [Concomitant]
     Indication: ANALGESIC THERAPY
  13. MORPHINE [Concomitant]
     Indication: PAIN
     Dosage: 3 MG, UNK
     Route: 040
  14. DILAUDID [Concomitant]
     Dosage: 1 MG, UNK
  15. NITROGLYCERIN [Concomitant]
     Indication: CHEST PAIN
     Dosage: 0.4 MG, UNK
     Route: 060
  16. OXYCODONE HCL AND ACETAMINOPHEN [Concomitant]
     Indication: PAIN

REACTIONS (7)
  - PAIN IN EXTREMITY [None]
  - DEEP VEIN THROMBOSIS [None]
  - ARTERIAL THROMBOSIS LIMB [None]
  - OEDEMA PERIPHERAL [None]
  - ANXIETY [None]
  - THROMBOPHLEBITIS [None]
  - MUSCULOSKELETAL PAIN [None]
